FAERS Safety Report 21372106 (Version 1)
Quarter: 2022Q3

REPORT INFORMATION
  Report Type: Spontaneous
  Country: US (occurrence: US)
  Receive Date: 20220923
  Receipt Date: 20220923
  Transmission Date: 20221027
  Serious: Yes (Other)
  Sender: FDA-Public Use
  Company Number: US-ALLERGAN-2219283US

PATIENT
  Sex: Female
  Weight: 90.718 kg

DRUGS (3)
  1. ALPHAGAN P [Suspect]
     Active Substance: BRIMONIDINE TARTRATE
     Indication: Glaucoma
     Dosage: 1 GTT, BID
     Route: 047
     Dates: start: 2021
  2. ZIOPTAN [Suspect]
     Active Substance: TAFLUPROST
     Indication: Glaucoma
     Dosage: 1 DF, QD
     Route: 047
  3. UNSPECIFIED INGREDIENT [Suspect]
     Active Substance: UNSPECIFIED INGREDIENT
     Indication: Product used for unknown indication

REACTIONS (9)
  - Visual impairment [Unknown]
  - Urinary tract infection [Recovering/Resolving]
  - Micturition urgency [Recovering/Resolving]
  - Haemorrhage [Recovered/Resolved]
  - Pruritus [Recovering/Resolving]
  - Urticaria [Recovering/Resolving]
  - Inappropriate schedule of product administration [Unknown]
  - Intraocular pressure increased [Unknown]
  - Drug ineffective [Unknown]

NARRATIVE: CASE EVENT DATE: 20210101
